FAERS Safety Report 20727287 (Version 5)
Quarter: 2022Q2

REPORT INFORMATION
  Report Type: Report from Study
  Country: CZ (occurrence: CZ)
  Receive Date: 20220419
  Receipt Date: 20220525
  Transmission Date: 20220721
  Serious: Yes (Hospitalization)
  Sender: FDA-Public Use
  Company Number: CZ-Taiho Oncology Inc-EU-2022-00985

PATIENT
  Age: 70 Year
  Sex: Male
  Weight: 73 kg

DRUGS (8)
  1. TIPIRACIL HYDROCHLORIDE\TRIFLURIDINE [Suspect]
     Active Substance: TIPIRACIL HYDROCHLORIDE\TRIFLURIDINE
     Indication: Thymoma
     Dosage: CURRENT CYCLE 41
     Route: 048
     Dates: start: 20181101, end: 20220408
  2. PYRIDOXINE [Concomitant]
     Active Substance: PYRIDOXINE
     Indication: Nutritional supplementation
     Route: 048
     Dates: start: 2021
  3. FOLIC ACID [Concomitant]
     Active Substance: FOLIC ACID
     Indication: Nutritional supplementation
     Route: 048
     Dates: start: 2021
  4. ALFACALCIDOL CANDE [Concomitant]
     Indication: Nutritional supplementation
     Dosage: EVERY OTHER DAY
     Route: 048
     Dates: start: 2021
  5. ZALDIAR [Concomitant]
     Active Substance: ACETAMINOPHEN\TRAMADOL HYDROCHLORIDE
     Indication: Analgesic therapy
     Dosage: 37.5/325 MG, PRN
     Route: 048
     Dates: start: 2021
  6. DICLOFENAC [Concomitant]
     Active Substance: DICLOFENAC
     Indication: Analgesic therapy
     Dosage: PRN
     Route: 048
     Dates: start: 2020
  7. OMEPRAZOLE [Concomitant]
     Active Substance: OMEPRAZOLE
     Indication: Prophylaxis against gastrointestinal ulcer
     Route: 048
     Dates: start: 2020
  8. ASPIRIN [Concomitant]
     Active Substance: ASPIRIN
     Indication: Thrombosis prophylaxis
     Dates: start: 2015

REACTIONS (1)
  - Dyspepsia [Recovered/Resolved]

NARRATIVE: CASE EVENT DATE: 20220406
